FAERS Safety Report 9363757 (Version 1)
Quarter: 2013Q2

REPORT INFORMATION
  Report Type: Spontaneous
  Country: KR (occurrence: KR)
  Receive Date: 20130624
  Receipt Date: 20130624
  Transmission Date: 20140414
  Serious: Yes (Hospitalization)
  Sender: FDA-Public Use
  Company Number: KR-NAPPMUNDI-GBR-2013-0014549

PATIENT
  Sex: Female

DRUGS (1)
  1. IRCODON IR TABLETS [Suspect]
     Indication: ARTHRALGIA
     Dosage: UNK

REACTIONS (1)
  - Ileus [Recovering/Resolving]
